FAERS Safety Report 9039519 (Version 1)
Quarter: 2013Q1

REPORT INFORMATION
  Report Type: Spontaneous
  Country: US (occurrence: None)
  Receive Date: 20130123
  Receipt Date: 20130123
  Transmission Date: 20140127
  Serious: Yes (Death)
  Sender: FDA-Public Use
  Company Number: None

PATIENT
  Age: 22 Year
  Sex: Male
  Weight: 70.3 kg

DRUGS (9)
  1. EVEROLIMUS [Suspect]
     Indication: OPTIC GLIOMA
     Route: 048
     Dates: start: 20120711, end: 20121204
  2. RISPERDAL [Concomitant]
  3. LAMICTAL [Concomitant]
  4. KEPPRA [Concomitant]
  5. ACIDOPHILUS [Concomitant]
  6. TUMS [Concomitant]
  7. MULTIVITAMIN [Concomitant]
  8. SUNTINIB [Concomitant]
  9. PHENYTOIN [Concomitant]

REACTIONS (7)
  - Pelvic mass [None]
  - Fluid overload [None]
  - Hyponatraemia [None]
  - Convulsion [None]
  - Apnoea [None]
  - Aspiration [None]
  - Cardiac arrest [None]
